FAERS Safety Report 9424732 (Version 2)
Quarter: 2014Q2

REPORT INFORMATION
  Report Type: Spontaneous
  Country: US (occurrence: US)
  Receive Date: 20130729
  Receipt Date: 20140512
  Transmission Date: 20141212
  Serious: Yes (Life-Threatening, Hospitalization, Other)
  Sender: FDA-Public Use
  Company Number: US-ELI_LILLY_AND_COMPANY-US201307007895

PATIENT
  Age: 36 Year
  Sex: Female
  Weight: 90.7 kg

DRUGS (6)
  1. CYMBALTA [Suspect]
     Indication: POST-TRAUMATIC STRESS DISORDER
     Dosage: 30 MG, QD
     Route: 048
     Dates: start: 20130301, end: 20130314
  2. CYMBALTA [Suspect]
     Indication: ANXIETY
  3. CYMBALTA [Suspect]
     Indication: NECK PAIN
  4. NUCYNTA [Concomitant]
     Dosage: 100 MG, OTHER
     Route: 065
  5. ACETAMINOPHEN W/BUTALBITAL [Concomitant]
     Dosage: UNK UNK, OTHER
     Route: 065
  6. CHLORZOXAZONE [Concomitant]
     Dosage: 750 MG, OTHER
     Route: 065

REACTIONS (3)
  - Hepatic necrosis [Recovering/Resolving]
  - Hepatic cirrhosis [Recovering/Resolving]
  - Portal hypertension [Recovering/Resolving]
